FAERS Safety Report 13012227 (Version 2)
Quarter: 2017Q1

REPORT INFORMATION
  Report Type: Report from Study
  Country: DE (occurrence: DE)
  Receive Date: 20161209
  Receipt Date: 20170123
  Transmission Date: 20170428
  Serious: Yes (Hospitalization, Other)
  Sender: FDA-Public Use
  Company Number: DE-AMGEN-DEUSL2016155693

PATIENT
  Age: 57 Year
  Sex: Male
  Weight: 68 kg

DRUGS (30)
  1. FLUOROURACIL. [Concomitant]
     Active Substance: FLUOROURACIL
     Dosage: 3600 UNK, UNK, DAY 1,8,DURATION OF CYCLE 14
     Dates: start: 20160210, end: 20160531
  2. 5 FU [Concomitant]
     Active Substance: FLUOROURACIL
     Indication: COLORECTAL CANCER
     Dosage: UNK
     Dates: start: 201404, end: 201406
  3. 5 FU [Concomitant]
     Active Substance: FLUOROURACIL
     Dosage: UNK
     Dates: start: 201407, end: 201409
  4. PANITUMUMAB [Suspect]
     Active Substance: PANITUMUMAB
     Indication: RECTAL CANCER
     Dosage: UNK
     Route: 065
     Dates: start: 201412, end: 201503
  5. OXALIPLATIN. [Suspect]
     Active Substance: OXALIPLATIN
     Indication: COLORECTAL CANCER
     Dosage: UNK
     Route: 065
     Dates: start: 201404, end: 201406
  6. PANITUMUMAB [Suspect]
     Active Substance: PANITUMUMAB
     Dosage: UNK
     Route: 065
     Dates: start: 201510, end: 201601
  7. CALCIUM FOLINATE [Concomitant]
     Active Substance: LEUCOVORIN CALCIUM
     Dosage: 400 UNK, UNK, DAY 1,2, DURATION OF CYCLE 14
     Dates: start: 20160628, end: 20161006
  8. FOLIC ACID. [Concomitant]
     Active Substance: FOLIC ACID
     Dosage: UNK
     Dates: start: 201510, end: 201601
  9. OXALIPLATIN. [Suspect]
     Active Substance: OXALIPLATIN
     Dosage: UNK
     Route: 065
     Dates: start: 201407, end: 201409
  10. CALCIUM FOLINATE [Concomitant]
     Active Substance: LEUCOVORIN CALCIUM
     Dosage: 400 UNK, UNK, DAY 1,8, DURATION OF CYCLE 14
     Dates: start: 20151013, end: 20160104
  11. FLUOROURACIL. [Concomitant]
     Active Substance: FLUOROURACIL
     Dosage: 1200 UNK, UNK, DAY 1,2, DURATION OF CYCLE 14
     Dates: start: 20151013, end: 20160104
  12. 5 FU [Concomitant]
     Active Substance: FLUOROURACIL
     Dosage: UNK
     Dates: start: 2015, end: 201607
  13. FOLIC ACID. [Concomitant]
     Active Substance: FOLIC ACID
     Dosage: UNK
     Dates: start: 2015, end: 201507
  14. FOLIC ACID. [Concomitant]
     Active Substance: FOLIC ACID
     Dosage: UNK
     Dates: start: 201602, end: 201603
  15. CALCIUM FOLINATE [Concomitant]
     Active Substance: LEUCOVORIN CALCIUM
     Dosage: 300 UNK, UNK, DAY 1,8, DURATION OF CYCLE 14
     Dates: start: 20160210, end: 20160531
  16. FOLINIC ACID [Concomitant]
     Active Substance: LEUCOVORIN
     Dosage: UNK
     Dates: start: 201407, end: 201409
  17. FLUOROURACIL. [Concomitant]
     Active Substance: FLUOROURACIL
     Indication: COLORECTAL CANCER
     Dosage: 3800 MG, UNK
     Dates: start: 20140410, end: 20150624
  18. 5 FU [Concomitant]
     Active Substance: FLUOROURACIL
     Dosage: UNK
     Dates: start: 201602, end: 201603
  19. FOLIC ACID. [Concomitant]
     Active Substance: FOLIC ACID
     Dosage: UNK
     Dates: start: 201412, end: 201503
  20. FOLIC ACID. [Concomitant]
     Active Substance: FOLIC ACID
     Dosage: UNK
     Dates: start: 201606
  21. CALCIUM FOLINATE [Concomitant]
     Active Substance: LEUCOVORIN CALCIUM
     Indication: COLORECTAL CANCER
     Dosage: 200 MG, UNK, DAY 1,8,15,22,29
     Dates: start: 20140410, end: 20150624
  22. FOLINIC ACID [Concomitant]
     Active Substance: LEUCOVORIN
     Indication: COLORECTAL CANCER
     Dosage: UNK
     Dates: start: 201404, end: 201406
  23. FOLIC ACID. [Concomitant]
     Active Substance: FOLIC ACID
     Dosage: UNK
     Dates: start: 201606, end: 201610
  24. PANITUMUMAB [Suspect]
     Active Substance: PANITUMUMAB
     Indication: COLORECTAL CANCER
     Dosage: UNK
     Route: 065
     Dates: start: 201407, end: 201409
  25. PANITUMUMAB [Suspect]
     Active Substance: PANITUMUMAB
     Dosage: 420 MG, UNK, 14 DAYS
     Route: 042
     Dates: start: 201606, end: 20161005
  26. BEVACIZUMAB [Concomitant]
     Active Substance: BEVACIZUMAB
     Indication: COLORECTAL CANCER
     Dosage: 350 MG, UNK, DAY 1
     Dates: start: 20160210, end: 20160524
  27. 5 FU [Concomitant]
     Active Substance: FLUOROURACIL
     Dosage: UNK
     Dates: start: 201412, end: 201503
  28. 5 FU [Concomitant]
     Active Substance: FLUOROURACIL
     Dosage: UNK
     Dates: start: 201510, end: 201601
  29. 5 FU [Concomitant]
     Active Substance: FLUOROURACIL
     Dosage: UNK
     Dates: start: 201606, end: 201610
  30. AVASTIN [Concomitant]
     Active Substance: BEVACIZUMAB
     Indication: COLORECTAL CANCER
     Dosage: UNK
     Dates: start: 201602, end: 201603

REACTIONS (15)
  - Hypersensitivity [Unknown]
  - Sleep apnoea syndrome [Unknown]
  - Metastases to liver [Not Recovered/Not Resolved]
  - Superior vena cava syndrome [Recovered/Resolved]
  - Spinal osteoarthritis [Recovered/Resolved]
  - Dry skin [Not Recovered/Not Resolved]
  - Rash [Not Recovered/Not Resolved]
  - Swelling face [Not Recovered/Not Resolved]
  - Polyneuropathy [Not Recovered/Not Resolved]
  - Tobacco abuse [Not Recovered/Not Resolved]
  - Skin reaction [Unknown]
  - Superior vena cava stenosis [Recovered/Resolved]
  - Skin toxicity [Not Recovered/Not Resolved]
  - Disease progression [Unknown]
  - Vertebral foraminal stenosis [Recovered/Resolved]

NARRATIVE: CASE EVENT DATE: 201410
